FAERS Safety Report 6733781-2 (Version None)
Quarter: 2010Q2

REPORT INFORMATION
  Report Type: 
  Country: None (occurrence: None)
  Receive Date: 20100520
  Receipt Date: 20100512
  Transmission Date: 20101027
  Serious: Yes (Death, Hospitalization, Other)
  Sender: FDA-Public Use
  Company Number: US-AMGEN-QUU390671

PATIENT
  Sex: Female

DRUGS (7)
  1. NPLATE [Suspect]
     Indication: IDIOPATHIC THROMBOCYTOPENIC PURPURA
     Route: 058
     Dates: start: 20090620, end: 20090620
  2. AMARYL [Concomitant]
     Route: 048
  3. JANUVIA [Concomitant]
     Route: 048
  4. PREDNISONE [Concomitant]
  5. SYNTHROID [Concomitant]
     Route: 048
  6. CRESTOR [Concomitant]
     Route: 048
  7. NEXIUM [Concomitant]
     Route: 048

REACTIONS (8)
  - ACUTE RESPIRATORY DISTRESS SYNDROME [None]
  - ATRIAL FIBRILLATION [None]
  - DIABETES MELLITUS INADEQUATE CONTROL [None]
  - MENTAL DISORDER [None]
  - PALPITATIONS [None]
  - PLEURAL EFFUSION [None]
  - PULMONARY OEDEMA [None]
  - THROMBOCYTOPENIA [None]
